FAERS Safety Report 8322801-X (Version None)
Quarter: 2012Q2

REPORT INFORMATION
  Report Type: 
  Country: None (occurrence: None)
  Receive Date: 20120430
  Receipt Date: 20120420
  Transmission Date: 20120825
  Serious: Yes (Other)
  Sender: FDA-Public Use
  Company Number: US-BAYER-2012-039319

PATIENT

DRUGS (1)
  1. NAPROXEN SODIUM [Suspect]
     Dosage: 6 DF, ONCE
     Route: 048

REACTIONS (1)
  - PAIN [None]
